FAERS Safety Report 8764475 (Version 2)
Quarter: 2012Q4

REPORT INFORMATION
  Report Type: 
  Country: JP (occurrence: JP)
  Receive Date: 20120831
  Receipt Date: 20120910
  Transmission Date: 20130627
  Serious: Yes (Other)
  Sender: FDA-Public Use
  Company Number: CHPA2012JP019126

PATIENT
  Age: 76 Year
  Sex: Male

DRUGS (2)
  1. PURSENNID [Suspect]
     Dosage: Unk, Unk
     Route: 048
  2. DRUG THERAPY NOS [Concomitant]
     Dosage: Unk, Unk

REACTIONS (2)
  - Inappropriate antidiuretic hormone secretion [Unknown]
  - Hyponatraemia [Unknown]
